FAERS Safety Report 6621197-9 (Version None)
Quarter: 2010Q1

REPORT INFORMATION
  Report Type: 
  Country: None (occurrence: None)
  Receive Date: 20100309
  Receipt Date: 20100222
  Transmission Date: 20100710
  Serious: No
  Sender: FDA-Public Use
  Company Number: US-BIOGENIDEC-2010BI006068

PATIENT
  Age: 51 Year
  Sex: Male

DRUGS (1)
  1. AVONEX [Suspect]
     Indication: MULTIPLE SCLEROSIS
     Route: 030
     Dates: start: 20041014

REACTIONS (8)
  - ASTHENIA [None]
  - COGNITIVE DISORDER [None]
  - COORDINATION ABNORMAL [None]
  - DYSARTHRIA [None]
  - GAIT DISTURBANCE [None]
  - HEADACHE [None]
  - TREMOR [None]
  - VISUAL IMPAIRMENT [None]
